FAERS Safety Report 7754019-3 (Version None)
Quarter: 2011Q3

REPORT INFORMATION
  Report Type: 
  Country: None (occurrence: None)
  Receive Date: 20110915
  Receipt Date: 20110902
  Transmission Date: 20111222
  Serious: Yes (Hospitalization)
  Sender: FDA-Public Use
  Company Number: PHHO2011US09437

PATIENT
  Sex: Male

DRUGS (5)
  1. NEORAL [Suspect]
     Indication: RENAL TRANSPLANT
     Dosage: 175 MG, QD
     Dates: start: 20110218
  2. MYCOPHENOLATE MOFETIL [Concomitant]
     Dosage: UNK
     Dates: start: 20070723
  3. COUMADIN [Concomitant]
  4. PREDNISONE [Concomitant]
     Dosage: UNK
     Dates: start: 20090723
  5. FUROSEMIDE [Concomitant]
     Dosage: UNK
     Dates: start: 20110711

REACTIONS (4)
  - CHEST PAIN [None]
  - MUSCLE HAEMORRHAGE [None]
  - PNEUMONIA [None]
  - TRANSIENT ISCHAEMIC ATTACK [None]
